FAERS Safety Report 4361281-6 (Version None)
Quarter: 2004Q2

REPORT INFORMATION
  Report Type: 
  Country: None (occurrence: None)
  Receive Date: 20040520
  Receipt Date: 20040511
  Transmission Date: 20050107
  Serious: Yes (Hospitalization)
  Sender: FDA-Public Use
  Company Number: FR-GLAXOSMITHKLINE-B0332385A

PATIENT
  Age: 62 Year
  Sex: Male
  Weight: 68 kg

DRUGS (8)
  1. SERETIDE [Suspect]
     Route: 055
     Dates: start: 20030301
  2. PERCUTALGINE [Suspect]
     Dates: start: 20031215, end: 20031216
  3. SYNTHOL [Suspect]
     Dates: start: 20031226, end: 20031229
  4. ZANIDIP [Suspect]
     Route: 048
     Dates: start: 20030301
  5. FELDENE [Suspect]
     Dosage: 20MG WEEKLY
     Route: 030
     Dates: start: 20040207, end: 20040228
  6. KETOPROFEN [Suspect]
     Route: 061
     Dates: start: 20031220, end: 20031225
  7. ALGIPAN [Concomitant]
     Dates: start: 20040102, end: 20040105
  8. PROCAINE HYDROCHLORIDE INJ [Concomitant]
     Dates: start: 20040207, end: 20040228

REACTIONS (4)
  - ECZEMA [None]
  - EOSINOPHIL COUNT INCREASED [None]
  - FACE OEDEMA [None]
  - PHOTOSENSITIVITY REACTION [None]
